FAERS Safety Report 10557886 (Version 2)
Quarter: 2015Q2

REPORT INFORMATION
  Report Type: Report from Study
  Country: JP (occurrence: JP)
  Receive Date: 20141031
  Receipt Date: 20150421
  Transmission Date: 20150821
  Serious: Yes (Death)
  Sender: FDA-Public Use
  Company Number: JP-TEVA-518192ISR

PATIENT
  Age: 20 Year
  Sex: Female
  Weight: 46.7 kg

DRUGS (11)
  1. EPOPROSTENOL INTRAVENOUS TEVA, INJ [Suspect]
     Active Substance: EPOPROSTENOL
     Dosage: 2.29 MILLIGRAM DAILY; 34NG/KG/MIN (CONTINUOUS INTRAVEOUS INFUSION)
     Route: 041
     Dates: start: 20121205
  2. EPOPROSTENOL INTRAVENOUS TEVA, INJ [Suspect]
     Active Substance: EPOPROSTENOL
     Dosage: .54 MILLIGRAM DAILY; 8NG/KG/MIN (CONTINUOUS INTRAVEOUS INFUSION)
     Route: 041
     Dates: start: 20121025
  3. EPOPROSTENOL INTRAVENOUS TEVA, INJ [Suspect]
     Active Substance: EPOPROSTENOL
     Dosage: 1.88 MILLIGRAM DAILY; 28NG/KG/MIN (CONTINUOUS INTRAVEOUS INFUSION)
     Route: 041
     Dates: start: 20121114
  4. EPOPROSTENOL INTRAVENOUS TEVA, INJ [Suspect]
     Active Substance: EPOPROSTENOL
     Dosage: 2.22 MILLIGRAM DAILY; 33NG/KG/MIN (CONTINUOUS INTRAVEOUS INFUSION)
     Route: 041
     Dates: start: 20121121
  5. EPOPROSTENOL INTRAVENOUS TEVA, INJ [Suspect]
     Active Substance: EPOPROSTENOL
     Dosage: 2.29 MILLIGRAM DAILY; 34NG/KG/MIN (CONTINUOUS INTRAVEOUS INFUSION)
     Route: 041
     Dates: start: 20121211
  6. REVATIO TABLETS 20MG [Concomitant]
     Indication: PULMONARY ARTERIAL HYPERTENSION
     Dosage: 60 MILLIGRAM DAILY;
     Route: 048
     Dates: start: 20121018
  7. EPOPROSTENOL INTRAVENOUS TEVA, INJ [Suspect]
     Active Substance: EPOPROSTENOL
     Indication: PULMONARY ARTERIAL HYPERTENSION
     Dosage: .07 MILLIGRAM DAILY; 1NG/KG/MIN (CONTINUOUS INTRAVEOUS INFUSION)
     Route: 041
     Dates: start: 20121018
  8. EPOPROSTENOL INTRAVENOUS TEVA, INJ [Suspect]
     Active Substance: EPOPROSTENOL
     Dosage: 1.01 MILLIGRAM DAILY; 15NG/KG/MIN (CONTINUOUS INTRAVEOUS INFUSION)
     Route: 041
     Dates: start: 20121101
  9. EPOPROSTENOL INTRAVENOUS TEVA, INJ [Suspect]
     Active Substance: EPOPROSTENOL
     Dosage: 1.48 MILLIGRAM DAILY; 22NG/KG/MIN (CONTINUOUS INTRAVEOUS INFUSION)
     Route: 041
     Dates: start: 20121108
  10. EPOPROSTENOL INTRAVENOUS TEVA, INJ [Suspect]
     Active Substance: EPOPROSTENOL
     Dosage: 2.29 MILLIGRAM DAILY; 34NG/KG/MIN (CONTINUOUS INTRAVEOUS INFUSION)
     Route: 041
     Dates: start: 20121218
  11. VOLIBRIS TABLETS2.5MG [Concomitant]
     Indication: PULMONARY ARTERIAL HYPERTENSION
     Dosage: 5 MILLIGRAM DAILY;
     Route: 048
     Dates: start: 20121113

REACTIONS (1)
  - Death [Fatal]
